FAERS Safety Report 4810009-1 (Version None)
Quarter: 2005Q4

REPORT INFORMATION
  Report Type: 
  Country: None (occurrence: None)
  Receive Date: 20051024
  Receipt Date: 20051024
  Transmission Date: 20060501
  Serious: Yes (Other)
  Sender: FDA-Public Use
  Company Number: None

PATIENT
  Sex: Male
  Weight: 85.7298 kg

DRUGS (4)
  1. OLANZAPINE [Suspect]
     Indication: PSYCHOTIC DISORDER
     Dosage: 15MG   QHS   PO
     Route: 048
     Dates: start: 20050501, end: 20051021
  2. METFORMIN HCL [Concomitant]
  3. ROSIGLITAZONE [Concomitant]
  4. GLIPIZIDE [Concomitant]

REACTIONS (1)
  - DIABETES MELLITUS [None]
